FAERS Safety Report 21418532 (Version 2)
Quarter: 2023Q1

REPORT INFORMATION
  Report Type: Spontaneous
  Country: US (occurrence: US)
  Receive Date: 20221006
  Receipt Date: 20230104
  Transmission Date: 20230417
  Serious: No
  Sender: FDA-Public Use
  Company Number: US-BRISTOL-MYERS SQUIBB COMPANY-2022-116842

PATIENT
  Age: 73 Year
  Sex: Male

DRUGS (1)
  1. ORENCIA [Suspect]
     Active Substance: ABATACEPT
     Indication: Product used for unknown indication
     Route: 058

REACTIONS (9)
  - Diarrhoea [Unknown]
  - Peripheral swelling [Unknown]
  - Pruritus [Unknown]
  - Blister [Unknown]
  - Limb discomfort [Unknown]
  - Dyspnoea [Unknown]
  - Skin exfoliation [Unknown]
  - Dysphonia [Unknown]
  - Amnesia [Unknown]
